FAERS Safety Report 8720589 (Version 2)
Quarter: 2013Q3

REPORT INFORMATION
  Report Type: Spontaneous
  Country: US (occurrence: US)
  Receive Date: 20120813
  Receipt Date: 20130802
  Transmission Date: 20140515
  Serious: Yes (Other)
  Sender: FDA-Public Use
  Company Number: US-ASTRAZENECA-2012SE55150

PATIENT
  Age: 66 Year
  Sex: Female
  Weight: 81.6 kg

DRUGS (24)
  1. CRESTOR [Suspect]
     Indication: BLOOD CHOLESTEROL INCREASED
     Route: 048
  2. CRESTOR [Suspect]
     Indication: BLOOD CHOLESTEROL INCREASED
     Route: 048
     Dates: start: 2007
  3. NEXIUM [Suspect]
     Indication: GASTROOESOPHAGEAL REFLUX DISEASE
     Route: 048
     Dates: start: 2003, end: 201302
  4. NEXIUM [Suspect]
     Indication: GASTROOESOPHAGEAL REFLUX DISEASE
     Route: 048
     Dates: start: 201306, end: 20130719
  5. OMEPRAZOLE [Suspect]
     Route: 048
     Dates: start: 201304, end: 201306
  6. LISINOPRIL [Suspect]
     Route: 048
  7. LISINOPRIL [Suspect]
     Dosage: 12.5 MG, TWO TIMES A DAY
     Route: 048
     Dates: start: 201303
  8. VITAMINS [Concomitant]
  9. COREG [Concomitant]
     Indication: HYPERTENSION
     Route: 048
     Dates: start: 1995, end: 201303
  10. GENOTROPIN [Concomitant]
     Indication: CONGENITAL CYSTIC KIDNEY DISEASE
     Dosage: 0.2, DAILY
     Route: 058
     Dates: start: 2004
  11. ZYRTEC [Concomitant]
     Indication: MULTIPLE ALLERGIES
     Dosage: PRN
     Route: 048
     Dates: start: 2004
  12. XANAX [Concomitant]
     Indication: ANXIETY
     Route: 048
     Dates: start: 2003
  13. FUROSEMIDE [Concomitant]
     Indication: DIURETIC THERAPY
     Route: 048
     Dates: start: 2007
  14. ZANTAC [Concomitant]
     Indication: GASTROOESOPHAGEAL REFLUX DISEASE
     Route: 048
     Dates: start: 201307
  15. PEPTO-BISMOL [Concomitant]
     Indication: GASTROOESOPHAGEAL REFLUX DISEASE
     Dosage: PRN
     Route: 048
     Dates: start: 201307
  16. TRAMADOL [Concomitant]
     Indication: PAIN
     Route: 048
     Dates: start: 2012
  17. CITALOPRAM [Concomitant]
     Indication: ANTIDEPRESSANT THERAPY
     Route: 048
     Dates: start: 2012
  18. FISH OIL [Concomitant]
     Indication: BLOOD CHOLESTEROL ABNORMAL
     Dosage: DAILY
     Route: 048
     Dates: start: 2009, end: 2013
  19. VITAMIN D3 [Concomitant]
     Indication: VITAMIN D DEFICIENCY
     Route: 048
     Dates: start: 2008
  20. GARLIC [Concomitant]
     Indication: VITAMIN D DEFICIENCY
     Dosage: DAILY
     Route: 048
     Dates: start: 201212, end: 201303
  21. PROBIOTIC [Concomitant]
     Indication: DYSPEPSIA
     Dosage: DAILY
     Route: 048
     Dates: start: 201301
  22. PROBIOTIC [Concomitant]
     Indication: DISBACTERIOSIS
     Dosage: DAILY
     Route: 048
     Dates: start: 201301
  23. CIPRO [Concomitant]
     Indication: CYSTITIS
     Route: 048
     Dates: start: 20130620, end: 20130627
  24. METRONIDAZOLE [Concomitant]
     Indication: CYSTITIS
     Route: 048
     Dates: start: 20130620, end: 20130627

REACTIONS (18)
  - Wallenberg syndrome [Unknown]
  - Adrenal neoplasm [Not Recovered/Not Resolved]
  - Blood triglycerides abnormal [Unknown]
  - Adverse drug reaction [Unknown]
  - Condition aggravated [Not Recovered/Not Resolved]
  - Cystitis [Unknown]
  - Dyspepsia [Unknown]
  - Abdominal distension [Not Recovered/Not Resolved]
  - Abdominal distension [Not Recovered/Not Resolved]
  - Abdominal tenderness [Not Recovered/Not Resolved]
  - Renal disorder [Not Recovered/Not Resolved]
  - Gastric disorder [Recovered/Resolved]
  - Vitamin D deficiency [Not Recovered/Not Resolved]
  - Migraine [Not Recovered/Not Resolved]
  - Dyspepsia [Not Recovered/Not Resolved]
  - Intentional drug misuse [Unknown]
  - Drug dose omission [Unknown]
  - Drug ineffective [Not Recovered/Not Resolved]
